FAERS Safety Report 15632785 (Version 1)
Quarter: 2018Q4

REPORT INFORMATION
  Report Type: Spontaneous
  Country: US (occurrence: US)
  Receive Date: 20181113
  Receipt Date: 20181113
  Transmission Date: 20190205
  Serious: Yes (Hospitalization, Other)
  Sender: FDA-Public Use
  Company Number: None

PATIENT
  Sex: Female

DRUGS (3)
  1. NORMAL SALINE [Suspect]
     Active Substance: SODIUM CHLORIDE
     Indication: PLASMA CELL MYELOMA
     Route: 041
     Dates: start: 20181004
  2. VELCADE [Suspect]
     Active Substance: BORTEZOMIB
     Dates: start: 20181004
  3. DEXAMETHAXSONE [Concomitant]

REACTIONS (9)
  - Lung infiltration [None]
  - Computerised tomogram abnormal [None]
  - Cerebral atrophy [None]
  - Lung infection [None]
  - Pneumonitis [None]
  - Neurodegenerative disorder [None]
  - Troponin increased [None]
  - Stress cardiomyopathy [None]
  - Blood lactic acid increased [None]

NARRATIVE: CASE EVENT DATE: 20181004
